FAERS Safety Report 8780929 (Version 1)
Quarter: 2012Q4

REPORT INFORMATION
  Report Type: 
  Country: JP (occurrence: JP)
  Receive Date: 20120913
  Receipt Date: 20120913
  Transmission Date: 20130627
  Serious: Yes (Hospitalization)
  Sender: FDA-Public Use
  Company Number: JP-PFIZER INC-2012219387

PATIENT

DRUGS (1)
  1. CHAMPIX [Suspect]
     Dosage: 1 mg, daily
     Route: 048

REACTIONS (1)
  - Arthropathy [Unknown]
